FAERS Safety Report 18433433 (Version 4)
Quarter: 2022Q2

REPORT INFORMATION
  Report Type: Report from Study
  Country: US (occurrence: US)
  Receive Date: 20201027
  Receipt Date: 20220608
  Transmission Date: 20220721
  Serious: Yes (Hospitalization, Other)
  Sender: FDA-Public Use
  Company Number: US-TAKEDA-US202034617

PATIENT
  Sex: Female
  Weight: 113.4 kg

DRUGS (26)
  1. HUMAN IMMUNOGLOBULIN G\HYALURONIDASE RECOMBINANT HUMAN [Suspect]
     Active Substance: HUMAN IMMUNOGLOBULIN G\HYALURONIDASE RECOMBINANT HUMAN
     Indication: Hypogammaglobulinaemia
     Dosage: 45 GRAM, Q4WEEKS
     Route: 058
     Dates: start: 20190225
  2. HUMAN IMMUNOGLOBULIN G\HYALURONIDASE RECOMBINANT HUMAN [Suspect]
     Active Substance: HUMAN IMMUNOGLOBULIN G\HYALURONIDASE RECOMBINANT HUMAN
     Indication: Immunodeficiency
  3. HUMAN IMMUNOGLOBULIN G\HYALURONIDASE RECOMBINANT HUMAN [Suspect]
     Active Substance: HUMAN IMMUNOGLOBULIN G\HYALURONIDASE RECOMBINANT HUMAN
     Indication: Osteoarthritis
  4. EPINEPHRINE [Concomitant]
     Active Substance: EPINEPHRINE
  5. AZITHROMYCIN [Concomitant]
     Active Substance: AZITHROMYCIN
  6. ALLEGRA [Concomitant]
     Active Substance: FEXOFENADINE HYDROCHLORIDE
  7. IBUPROFEN [Concomitant]
     Active Substance: IBUPROFEN
  8. CEFDINIR [Concomitant]
     Active Substance: CEFDINIR
  9. PEPCID [Concomitant]
     Active Substance: FAMOTIDINE
  10. TRAMADOL HCL [Concomitant]
     Active Substance: TRAMADOL HYDROCHLORIDE
     Route: 065
  11. METFORMIN HYDROCHLORIDE [Concomitant]
     Active Substance: METFORMIN HYDROCHLORIDE
     Route: 065
  12. ATORVASTATIN CALCIUM [Concomitant]
     Active Substance: ATORVASTATIN CALCIUM
     Route: 065
  13. ALBUTEROL\IPRATROPIUM [Concomitant]
     Active Substance: ALBUTEROL\IPRATROPIUM
  14. SODIUM CHLORIDE [Concomitant]
     Active Substance: SODIUM CHLORIDE
  15. BENZONATATE [Concomitant]
     Active Substance: BENZONATATE
  16. MELOXICAM [Concomitant]
     Active Substance: MELOXICAM
  17. CALCIUM CITRATE [Concomitant]
     Active Substance: CALCIUM CITRATE
  18. FLUTICASONE PROPIONATE [Concomitant]
     Active Substance: FLUTICASONE PROPIONATE
  19. ZYRTEC [Concomitant]
     Active Substance: CETIRIZINE HYDROCHLORIDE
  20. INCRUSE ELLIPTA [Concomitant]
     Active Substance: UMECLIDINIUM BROMIDE
  21. MONTELUKAST SODIUM [Concomitant]
     Active Substance: MONTELUKAST SODIUM
     Route: 065
  22. LIDOCAINE [Concomitant]
     Active Substance: LIDOCAINE
  23. ADVAIR HFA [Concomitant]
     Active Substance: FLUTICASONE PROPIONATE\SALMETEROL XINAFOATE
  24. THEOPHYLLINE [Concomitant]
     Active Substance: THEOPHYLLINE
  25. ACETYLCYSTEINE [Concomitant]
     Active Substance: ACETYLCYSTEINE
  26. MUCINEX [Concomitant]
     Active Substance: GUAIFENESIN

REACTIONS (4)
  - Chronic obstructive pulmonary disease [Unknown]
  - Pneumonia [Unknown]
  - Knee arthroplasty [Unknown]
  - Cataract operation [Unknown]
